FAERS Safety Report 8761200 (Version 1)
Quarter: 2012Q4

REPORT INFORMATION
  Report Type: 
  Country: IT (occurrence: IT)
  Receive Date: 20120830
  Receipt Date: 20120830
  Transmission Date: 20130627
  Serious: Yes (Death, Hospitalization)
  Sender: FDA-Public Use
  Company Number: IT-MYLANLABS-2012S1017213

PATIENT
  Age: 79 Year
  Sex: Female

DRUGS (7)
  1. KETOPROFEN [Suspect]
     Dosage: 50 mg/day
     Route: 048
  2. FUROSEMIDE [Suspect]
     Route: 065
  3. RAMIPRIL [Suspect]
     Route: 065
  4. CIPROFLOXACIN [Concomitant]
     Route: 065
  5. ASPIRIN [Concomitant]
     Route: 065
  6. CARVEDILOL [Concomitant]
     Route: 065
  7. OMEPRAZOLE [Concomitant]
     Route: 065

REACTIONS (4)
  - Renal failure acute [Fatal]
  - Cardiac failure [Unknown]
  - Pleural effusion [Unknown]
  - Metabolic acidosis [Unknown]
